FAERS Safety Report 24062097 (Version 2)
Quarter: 2024Q4

REPORT INFORMATION
  Report Type: Spontaneous
  Country: US (occurrence: US)
  Receive Date: 20240708
  Receipt Date: 20241003
  Transmission Date: 20250114
  Serious: Yes (Death)
  Sender: PFIZER
  Company Number: US-SEATTLE GENETICS-2024SGN04654

PATIENT
  Sex: Female

DRUGS (4)
  1. TUKYSA [Suspect]
     Active Substance: TUCATINIB
     Dosage: UNK
  2. TRASTUZUMAB [Suspect]
     Active Substance: TRASTUZUMAB
     Dosage: UNK
  3. CAPECITABINE [Suspect]
     Active Substance: CAPECITABINE
     Dosage: UNK
  4. HERCEPTIN [Suspect]
     Active Substance: TRASTUZUMAB
     Dosage: UNK

REACTIONS (1)
  - Neoplasm progression [Fatal]
